FAERS Safety Report 5503231-2 (Version None)
Quarter: 2007Q4

REPORT INFORMATION
  Report Type: 
  Country: None (occurrence: None)
  Receive Date: 20071031
  Receipt Date: 20071023
  Transmission Date: 20080405
  Serious: Yes (Hospitalization)
  Sender: FDA-Public Use
  Company Number: US-PFIZER INC-2006118841

PATIENT
  Sex: Female
  Weight: 70.8 kg

DRUGS (11)
  1. SUTENT [Suspect]
     Indication: BREAST CANCER METASTATIC
     Route: 048
     Dates: start: 20060330, end: 20071023
  2. PACLITAXEL [Suspect]
     Indication: BREAST CANCER METASTATIC
     Route: 042
     Dates: start: 20060330, end: 20060907
  3. LOPERAMIDE HCL [Concomitant]
     Route: 048
     Dates: start: 20060525
  4. EPOETIN ALFA [Concomitant]
     Route: 058
     Dates: start: 20060502
  5. NEUPOGEN [Concomitant]
     Route: 058
     Dates: start: 20060424
  6. ULTRAM [Concomitant]
     Route: 048
  7. ESOMEPRAZOLE MAGNESIUM [Concomitant]
     Route: 048
  8. FEXOFENADINE [Concomitant]
     Route: 048
  9. FUROSEMIDE [Concomitant]
     Route: 048
     Dates: start: 20060424
  10. POTASSIUM CHLORIDE [Concomitant]
     Route: 048
     Dates: start: 20060505
  11. MAGNESIUM SULFATE [Concomitant]
     Route: 065

REACTIONS (10)
  - CULTURE WOUND POSITIVE [None]
  - GASTROENTERITIS PROTEUS [None]
  - HYPERPLASIA [None]
  - INFECTED SKIN ULCER [None]
  - PSEUDOMONAS INFECTION [None]
  - SKIN GRAFT [None]
  - SKIN INFECTION [None]
  - SKIN ODOUR ABNORMAL [None]
  - STAPHYLOCOCCAL INFECTION [None]
  - VASCULITIS [None]
